FAERS Safety Report 20628634 (Version 3)
Quarter: 2023Q2

REPORT INFORMATION
  Report Type: Report from Study
  Country: US (occurrence: US)
  Receive Date: 20220323
  Receipt Date: 20230524
  Transmission Date: 20230721
  Serious: Yes (Hospitalization)
  Sender: FDA-Public Use
  Company Number: US-TAKEDA-2022TUS017963

PATIENT
  Sex: Female
  Weight: 88 kg

DRUGS (7)
  1. HUMAN IMMUNOGLOBULIN G [Suspect]
     Active Substance: HUMAN IMMUNOGLOBULIN G
     Indication: Immunodeficiency common variable
     Dosage: 10 GRAM, 1/WEEK
     Route: 058
     Dates: start: 20130901
  2. EPINEPHRINE [Concomitant]
     Active Substance: EPINEPHRINE
     Dosage: UNK
     Route: 065
  3. LIDOCAINE\PRILOCAINE [Concomitant]
     Active Substance: LIDOCAINE\PRILOCAINE
     Dosage: UNK
     Route: 065
  4. VITAMIN D3 [Concomitant]
     Active Substance: CHOLECALCIFEROL
     Dosage: UNK
     Route: 065
  5. LUTEIN [Concomitant]
     Active Substance: LUTEIN
     Dosage: UNK
     Route: 065
  6. COLLAGEN [Concomitant]
     Active Substance: COLLAGEN
     Dosage: UNK
     Route: 065
  7. BIOTIN [Concomitant]
     Active Substance: BIOTIN
     Dosage: UNK
     Route: 065

REACTIONS (4)
  - Hip arthroplasty [Unknown]
  - Viral infection [Unknown]
  - Bacterial infection [Unknown]
  - Multiple allergies [Unknown]
